FAERS Safety Report 11701432 (Version 1)
Quarter: 2015Q4

REPORT INFORMATION
  Report Type: Other
  Country: CA (occurrence: CA)
  Receive Date: 20151105
  Receipt Date: 20151105
  Transmission Date: 20160304
  Serious: Yes (Other)
  Sender: FDA-Public Use
  Company Number: CA-APOTEX-2015AP014002

PATIENT
  Age: 73 Year
  Sex: Female

DRUGS (2)
  1. APO-LEVOCARB [Suspect]
     Active Substance: CARBIDOPA\LEVODOPA
     Indication: PARKINSON^S DISEASE
     Dosage: 1 DF, 6 EVERY ONE DAY
     Route: 048
  2. SINEMET [Suspect]
     Active Substance: CARBIDOPA\LEVODOPA
     Indication: PARKINSON^S DISEASE
     Dosage: 1 DF, 6 EVERY ONE DAY
     Route: 048

REACTIONS (2)
  - Product substitution issue [Recovered/Resolved]
  - Drug effect decreased [Recovered/Resolved]
